FAERS Safety Report 9286588 (Version 1)
Quarter: 2013Q2

REPORT INFORMATION
  Report Type: Other
  Country: GB (occurrence: GB)
  Receive Date: 20130513
  Receipt Date: 20130513
  Transmission Date: 20140414
  Serious: Yes (Other)
  Sender: FDA-Public Use
  Company Number: GB-ACTAVIS-2013-08067

PATIENT
  Age: 83 Year
  Sex: Female

DRUGS (2)
  1. ACETAMINOPHEN-CODEINE PHOSPHATE (UNKNOWN) (ACETAMINOPHE, CODEINE PHOSPHATE) UNK, UNKUNK [Suspect]
     Indication: BACK PAIN
     Dosage: 1 DF, QID
     Route: 065
     Dates: start: 20130411, end: 20130414
  2. ADCAL                              /00056901/ [Concomitant]
     Indication: OSTEOPOROSIS
     Dosage: BEEN TAKING IT FOR ONE YEAR
     Route: 065

REACTIONS (5)
  - Micturition urgency [Recovering/Resolving]
  - Nocturia [Recovering/Resolving]
  - Somnolence [Recovered/Resolved]
  - Abdominal discomfort [Not Recovered/Not Resolved]
  - Diarrhoea [Unknown]
